FAERS Safety Report 9412845 (Version 2)
Quarter: 2013Q4

REPORT INFORMATION
  Report Type: Spontaneous
  Country: GB (occurrence: GB)
  Receive Date: 20130722
  Receipt Date: 20131104
  Transmission Date: 20140711
  Serious: Yes (Hospitalization)
  Sender: FDA-Public Use
  Company Number: PHHY2013GB076457

PATIENT
  Age: 81 Year
  Sex: Male

DRUGS (10)
  1. IRBESARTAN [Suspect]
     Route: 048
     Dates: end: 20130612
  2. BENDROFLUMETHIAZIDE [Suspect]
     Route: 048
     Dates: end: 20130612
  3. BISOPROLOL [Concomitant]
     Dosage: 1.25 MG, QD, IN THE MORNING
  4. BISOPROLOL [Concomitant]
     Dosage: ONE IN THE MORNING.
  5. WARFARIN [Concomitant]
  6. OMEPRAZOLE [Concomitant]
     Dosage: 20 MG, QD, IN THE MORNING
  7. OMEPRAZOLE [Concomitant]
     Dosage: ONE IN THE MORNING.
  8. SIMVASTATIN [Concomitant]
     Dosage: 20 MG, QD, AT NIGHT
  9. SIMVASTATIN [Concomitant]
     Dosage: ONE AT NIGHT.
  10. CALCICHEW D3 [Concomitant]
     Dosage: 2 DF, BID

REACTIONS (4)
  - Dehydration [Recovered/Resolved]
  - Renal failure acute [Recovered/Resolved]
  - Diarrhoea [Recovered/Resolved]
  - Vomiting [Recovered/Resolved]
